FAERS Safety Report 7172733-8 (Version None)
Quarter: 2010Q4

REPORT INFORMATION
  Report Type: 
  Country: None (occurrence: None)
  Receive Date: 20101218
  Receipt Date: 20101215
  Transmission Date: 20110411
  Serious: Yes (Other)
  Sender: FDA-Public Use
  Company Number: BR-ABBOTT-10P-020-0670348-00

PATIENT
  Sex: Female
  Weight: 73 kg

DRUGS (6)
  1. HUMIRA [Suspect]
     Indication: RHEUMATOID ARTHRITIS
     Route: 058
     Dates: start: 20030101
  2. INDIAN NUT [Concomitant]
     Indication: CARDIOVASCULAR DISORDER
     Route: 048
  3. CAPTOPRIL [Concomitant]
     Indication: HYPERTENSION
     Route: 048
  4. TRIONFORMINA [Concomitant]
     Indication: RHEUMATOID ARTHRITIS
     Route: 048
  5. PARACETAMOL [Concomitant]
     Indication: ANTIINFLAMMATORY THERAPY
     Route: 048
  6. UNKNOWN [Concomitant]
     Indication: ANTIINFLAMMATORY THERAPY
     Route: 048

REACTIONS (11)
  - BURSITIS [None]
  - CONSTIPATION [None]
  - CONTUSION [None]
  - HEADACHE [None]
  - LIMB INJURY [None]
  - NASOPHARYNGITIS [None]
  - PAIN IN EXTREMITY [None]
  - PYREXIA [None]
  - RENAL IMPAIRMENT [None]
  - SKIN LACERATION [None]
  - WEIGHT INCREASED [None]
